FAERS Safety Report 20594207 (Version 1)
Quarter: 2022Q1

REPORT INFORMATION
  Report Type: Report from Study
  Country: CN (occurrence: CN)
  Receive Date: 20220315
  Receipt Date: 20220315
  Transmission Date: 20220423
  Serious: Yes (Other)
  Sender: FDA-Public Use
  Company Number: CN-BRISTOL-MYERS SQUIBB COMPANY-BMS-2022-037182

PATIENT
  Age: 61 Year
  Sex: Male

DRUGS (2)
  1. NIVOLUMAB [Suspect]
     Active Substance: NIVOLUMAB
     Indication: Squamous cell carcinoma of head and neck
     Dosage: 200 MILLIGRAM, Q2WK
     Route: 041
     Dates: start: 20200312
  2. BEVACIZUMAB [Concomitant]
     Active Substance: BEVACIZUMAB
     Indication: Squamous cell carcinoma of head and neck
     Dosage: UNK
     Route: 065
     Dates: start: 20200312

REACTIONS (3)
  - Epilepsy [Unknown]
  - Cerebral disorder [Unknown]
  - Ligament sprain [Unknown]

NARRATIVE: CASE EVENT DATE: 20200101
